FAERS Safety Report 6272945-1 (Version None)
Quarter: 2009Q3

REPORT INFORMATION
  Report Type: 
  Country: None (occurrence: None)
  Receive Date: 20090720
  Receipt Date: 20071218
  Transmission Date: 20100115
  Serious: Yes (Hospitalization, Other)
  Sender: FDA-Public Use
  Company Number: US-ASTRAZENECA-2006UW11067

PATIENT
  Age: 16578 Day
  Sex: Female
  Weight: 61.2 kg

DRUGS (41)
  1. SEROQUEL [Suspect]
     Indication: BIPOLAR DISORDER
     Dosage: 20-600 MG
     Route: 048
     Dates: start: 20010902
  2. SEROQUEL [Suspect]
     Dosage: 100-200MG
     Route: 048
     Dates: start: 20020101, end: 20020801
  3. SEROQUEL [Suspect]
     Dosage: 100-300MG
     Route: 048
     Dates: start: 20020814, end: 20070501
  4. ABILIFY [Concomitant]
  5. HALDOL [Concomitant]
  6. RISPERDAL [Concomitant]
     Route: 048
     Dates: start: 19990201, end: 20031226
  7. TRILAFON [Concomitant]
  8. ZYPREXA [Concomitant]
     Route: 048
     Dates: start: 20040113, end: 20040115
  9. PAXIL [Concomitant]
     Route: 048
     Dates: start: 20030601
  10. LEXAPRO [Concomitant]
     Route: 048
     Dates: start: 20030501
  11. LORAZEPAM [Concomitant]
     Route: 048
     Dates: start: 20030501
  12. ZOLOFT [Concomitant]
     Route: 048
     Dates: start: 20050401
  13. TEMAZEPAM [Concomitant]
     Route: 048
     Dates: start: 20041001
  14. DALMANE [Concomitant]
     Dates: start: 20020801
  15. ASACOL [Concomitant]
     Route: 048
     Dates: start: 20040301
  16. ALPRAZOLAM [Concomitant]
     Route: 048
     Dates: start: 19990401
  17. TRAZODONE HCL [Concomitant]
     Route: 048
     Dates: start: 20040301
  18. FLUFENAMINE [Concomitant]
     Dates: start: 20050601
  19. CLOMIPRAMINE HCL [Concomitant]
     Route: 048
     Dates: start: 19990201
  20. LOXAPINE [Concomitant]
     Dates: start: 20060101
  21. GEODON [Concomitant]
     Dates: start: 20060915
  22. FAMOTIDINE [Concomitant]
     Dosage: 20-40 MG
  23. FLAGYL [Concomitant]
  24. COMPAZINE [Concomitant]
     Route: 048
  25. ATROVENT [Concomitant]
     Dates: start: 20031221
  26. PHENERGAN [Concomitant]
  27. BUSPAR [Concomitant]
     Dosage: 15-30 MG
     Route: 048
  28. TRILEPTAL [Concomitant]
     Dosage: 150-300 MG
     Route: 048
  29. XANAX [Concomitant]
     Dosage: 0.5-2 MG
     Route: 048
  30. PREDNISONE [Concomitant]
     Dosage: 10-40 MG
     Route: 048
  31. ZOFRAN [Concomitant]
     Dosage: 2-4 MG
     Route: 042
  32. MAXALT [Concomitant]
     Indication: MIGRAINE
     Dosage: 5-10 MG
     Route: 048
  33. DEMEROL [Concomitant]
     Dosage: 50-100 MG
     Dates: start: 20060123
  34. PROPRANOLOL [Concomitant]
     Dosage: 10-20 MG
     Route: 048
  35. REGLAN [Concomitant]
     Dosage: 5-10 MG
     Route: 048
  36. LOMOTIL [Concomitant]
     Dosage: 0.25-2.5 MG
     Route: 048
  37. FLUPHENAZINE [Concomitant]
     Route: 048
     Dates: start: 20050930
  38. DOXEPIN HYDROCHLORIDE [Concomitant]
  39. PERCOCET [Concomitant]
     Dosage: 5 MG/ 325 MG
  40. BENADRYL [Concomitant]
     Indication: ANXIETY
     Dosage: 25-50 MG
     Route: 048
  41. DESYREL [Concomitant]
     Route: 048

REACTIONS (5)
  - BLOOD CHOLESTEROL INCREASED [None]
  - GASTROENTERITIS [None]
  - HYPERLIPIDAEMIA [None]
  - INFLAMMATORY BOWEL DISEASE [None]
  - PANCREATITIS [None]
